FAERS Safety Report 10909718 (Version 1)
Quarter: 2015Q1

REPORT INFORMATION
  Report Type: Spontaneous
  Country: US (occurrence: US)
  Receive Date: 20150312
  Receipt Date: 20150312
  Transmission Date: 20150721
  Serious: No
  Sender: FDA-Public Use
  Company Number: US-SA-2014SA048524

PATIENT
  Age: 83 Year
  Sex: Male

DRUGS (1)
  1. NASACORT ALLERGY 24HR [Suspect]
     Active Substance: TRIAMCINOLONE ACETONIDE
     Indication: HYPERSENSITIVITY
     Route: 065
     Dates: start: 20140407, end: 20140407

REACTIONS (5)
  - Feeling abnormal [Recovered/Resolved]
  - Ear discomfort [Recovered/Resolved]
  - Balance disorder [Recovered/Resolved]
  - Prostatic disorder [Unknown]
  - Drug ineffective [Unknown]
